FAERS Safety Report 9170049 (Version 1)
Quarter: 2013Q1

REPORT INFORMATION
  Report Type: Spontaneous
  Country: US (occurrence: US)
  Receive Date: 20130319
  Receipt Date: 20130319
  Transmission Date: 20140127
  Serious: Yes (Other)
  Sender: FDA-Public Use
  Company Number: US-009507513-1303USA006487

PATIENT
  Sex: Female

DRUGS (3)
  1. AUROTHIOGLUCOSE [Suspect]
     Indication: RHEUMATOID ARTHRITIS
  2. MYOCHRYSINE [Suspect]
     Indication: RHEUMATOID ARTHRITIS
  3. ENBREL [Suspect]
     Indication: RHEUMATOID ARTHRITIS
     Dosage: UNK
     Dates: start: 1996, end: 2012

REACTIONS (5)
  - Colon cancer stage III [Unknown]
  - Breast cancer [Unknown]
  - Breast cancer [Unknown]
  - Flushing [Unknown]
  - Hypoaesthesia oral [Unknown]
